FAERS Safety Report 5927299-4 (Version None)
Quarter: 2008Q4

REPORT INFORMATION
  Report Type: 
  Country: None (occurrence: None)
  Receive Date: 20081017
  Receipt Date: 20081007
  Transmission Date: 20090506
  Serious: No
  Sender: FDA-Public Use
  Company Number: 2008AP002714

PATIENT
  Age: 30 Year
  Sex: Female

DRUGS (6)
  1. PAROXETINE HCL [Suspect]
     Indication: ANXIETY
     Dosage: 0.5 TAB : 5 ML;ORAL_LIQ
     Route: 048
     Dates: start: 19981021
  2. PAROXETINE HCL [Suspect]
     Indication: ANXIETY
     Dosage: 0.5 TAB : 5 ML;ORAL_LIQ
     Route: 048
     Dates: start: 19990301
  3. PAROXETINE HCL [Suspect]
     Indication: ANXIETY
     Dosage: 0.5 TAB : 5 ML;ORAL_LIQ
     Route: 048
     Dates: start: 20020401
  4. PAROXETINE HCL [Suspect]
     Indication: ANXIETY
     Dosage: 0.5 TAB : 5 ML;ORAL_LIQ
     Route: 048
     Dates: start: 20030204
  5. TRAZODONE HCL [Concomitant]
  6. TRAZODONE HCL [Concomitant]

REACTIONS (53)
  - ABNORMAL BEHAVIOUR [None]
  - ABNORMAL SENSATION IN EYE [None]
  - ABORTION SPONTANEOUS [None]
  - AGGRESSION [None]
  - ALCOHOL USE [None]
  - ANGER [None]
  - ANOREXIA [None]
  - ANXIETY [None]
  - BALANCE DISORDER [None]
  - CONDITION AGGRAVATED [None]
  - DEJA VU [None]
  - DELUSION [None]
  - DEPRESSED MOOD [None]
  - DEPRESSION [None]
  - DISTURBANCE IN ATTENTION [None]
  - DIZZINESS [None]
  - DRUG EXPOSURE DURING PREGNANCY [None]
  - DRUG WITHDRAWAL SYNDROME [None]
  - EATING DISORDER [None]
  - EYE DISORDER [None]
  - FEAR [None]
  - HEADACHE [None]
  - HYPERVENTILATION [None]
  - INSOMNIA [None]
  - INTENTIONAL SELF-INJURY [None]
  - IRRITABILITY [None]
  - LEGAL PROBLEM [None]
  - MALAISE [None]
  - MENTAL DISORDER [None]
  - MIGRAINE [None]
  - MOOD ALTERED [None]
  - MOOD SWINGS [None]
  - NAUSEA [None]
  - OVERDOSE [None]
  - PAIN [None]
  - PANIC ATTACK [None]
  - PARANOIA [None]
  - PARTNER STRESS [None]
  - PERSONALITY CHANGE [None]
  - PHOTOPSIA [None]
  - POISONING [None]
  - PREGNANCY [None]
  - SELF-INJURIOUS IDEATION [None]
  - SUICIDAL IDEATION [None]
  - SUICIDE ATTEMPT [None]
  - SUSPICIOUSNESS [None]
  - TEARFULNESS [None]
  - TINNITUS [None]
  - TREATMENT NONCOMPLIANCE [None]
  - TREMOR [None]
  - VISION BLURRED [None]
  - VOMITING [None]
  - WEIGHT INCREASED [None]
